FAERS Safety Report 9019226 (Version 1)
Quarter: 2013Q1

REPORT INFORMATION
  Report Type: Spontaneous
  Country: AU (occurrence: AU)
  Receive Date: 20130118
  Receipt Date: 20130118
  Transmission Date: 20140127
  Serious: Yes (Other)
  Sender: FDA-Public Use
  Company Number: AU-MERCK-1301AUS006499

PATIENT
  Age: 57 Year
  Sex: Female

DRUGS (4)
  1. JANUMET [Suspect]
     Dosage: UNK, ONCE
     Route: 048
     Dates: start: 20121025, end: 20121025
  2. IRBESARTAN [Concomitant]
  3. METFORMIN HYDROCHLORIDE [Concomitant]
  4. NOVOMIX 30 [Concomitant]

REACTIONS (1)
  - Transient ischaemic attack [Unknown]
